FAERS Safety Report 20501327 (Version 1)
Quarter: 2022Q1

REPORT INFORMATION
  Report Type: Spontaneous
  Country: US (occurrence: None)
  Receive Date: 20220221
  Receipt Date: 20220221
  Transmission Date: 20220423
  Serious: Yes (Hospitalization)
  Sender: FDA-Public Use
  Company Number: None

PATIENT
  Sex: Male

DRUGS (7)
  1. UDENYCA [Suspect]
     Active Substance: PEGFILGRASTIM-CBQV
     Indication: Plasma cell myeloma in remission
     Dosage: OTHER QUANTITY : 6 MG/0.6ML;?**TO BE ADMINISTERED  AT HOME** INJECT 0.6 ML UNDER THE SKIN AS DIRECTE
     Route: 058
     Dates: start: 20181222
  2. ACYCLOVIR [Concomitant]
     Active Substance: ACYCLOVIR
  3. FINASTERIDE [Concomitant]
     Active Substance: FINASTERIDE
  4. FISH OIL [Concomitant]
     Active Substance: FISH OIL
  5. GLUCOSAMINE [Concomitant]
     Active Substance: GLUCOSAMINE
  6. REVLIMID [Concomitant]
     Active Substance: LENALIDOMIDE
  7. VITAMIN D [Suspect]
     Active Substance: VITAMIN D NOS

REACTIONS (1)
  - Hospitalisation [None]
